FAERS Safety Report 23860558 (Version 1)
Quarter: 2024Q2

REPORT INFORMATION
  Report Type: Spontaneous
  Country: PT (occurrence: PT)
  Receive Date: 20240516
  Receipt Date: 20240516
  Transmission Date: 20240716
  Serious: Yes (Other)
  Sender: FDA-Public Use
  Company Number: PT-CELLTRION INC.-2024PT011071

PATIENT

DRUGS (2)
  1. RITUXIMAB [Suspect]
     Active Substance: RITUXIMAB
     Indication: Glomerulonephritis rapidly progressive
  2. PREDNISOLONE [Suspect]
     Active Substance: PREDNISOLONE
     Indication: Glomerulonephritis rapidly progressive
     Route: 065

REACTIONS (5)
  - Neck pain [Unknown]
  - Paraesthesia [Unknown]
  - Arthralgia [Unknown]
  - Bone tuberculosis [Unknown]
  - Intentional product use issue [Unknown]
